FAERS Safety Report 7275058-5 (Version None)
Quarter: 2011Q1

REPORT INFORMATION
  Report Type: 
  Country: None (occurrence: None)
  Receive Date: 20110204
  Receipt Date: 20110127
  Transmission Date: 20110831
  Serious: No
  Sender: FDA-Public Use
  Company Number: B0697336A

PATIENT
  Age: 8 Year

DRUGS (1)
  1. RELENZA [Suspect]
     Route: 048

REACTIONS (1)
  - INCORRECT ROUTE OF DRUG ADMINISTRATION [None]
